FAERS Safety Report 7972921-4 (Version None)
Quarter: 2011Q4

REPORT INFORMATION
  Report Type: 
  Country: None (occurrence: None)
  Receive Date: 20111213
  Receipt Date: 20110812
  Transmission Date: 20120403
  Serious: No
  Sender: FDA-Public Use
  Company Number: US-MYLANLABS-2011S1017166

PATIENT
  Age: 85 Year
  Sex: Female

DRUGS (4)
  1. FLURAZEPAM HYDROCHLORIDE [Suspect]
     Indication: INSOMNIA
     Route: 048
  2. ASPIRIN [Concomitant]
  3. LIPITOR [Concomitant]
  4. BLOOD PRESSURE MEDICATION [Concomitant]

REACTIONS (1)
  - FEELING ABNORMAL [None]
